FAERS Safety Report 17436126 (Version 1)
Quarter: 2020Q1

REPORT INFORMATION
  Report Type: Spontaneous
  Country: JP (occurrence: JP)
  Receive Date: 20200219
  Receipt Date: 20200219
  Transmission Date: 20200409
  Serious: Yes (Death, Other)
  Sender: FDA-Public Use
  Company Number: JP-OTSUKA-2019_036636

PATIENT
  Age: 59 Year
  Sex: Male
  Weight: 72 kg

DRUGS (4)
  1. FLUDARABINE PHOSPHATE. [Suspect]
     Active Substance: FLUDARABINE PHOSPHATE
     Indication: STEM CELL TRANSPLANT
     Dosage: 180 MG/SQM, UNK
     Route: 065
     Dates: start: 20180410, end: 20180416
  2. RUXOLITINIB PHOSPHATE [Concomitant]
     Active Substance: RUXOLITINIB PHOSPHATE
     Indication: ACUTE GRAFT VERSUS HOST DISEASE
     Dosage: UNK
     Route: 065
     Dates: start: 20180610
  3. BUSULFEX [Suspect]
     Active Substance: BUSULFAN
     Indication: STEM CELL TRANSPLANT
     Dosage: 240 MG, DAILY DOSE
     Route: 041
     Dates: start: 20180410, end: 20180413
  4. MELPHALAN. [Suspect]
     Active Substance: MELPHALAN
     Indication: STEM CELL TRANSPLANT
     Dosage: 80 MG/SQM, UNK
     Route: 065
     Dates: start: 20180410, end: 20180416

REACTIONS (2)
  - Post transplant lymphoproliferative disorder [Fatal]
  - Encephalitis viral [Unknown]

NARRATIVE: CASE EVENT DATE: 20180728
